FAERS Safety Report 9219939 (Version 2)
Quarter: 2013Q2

REPORT INFORMATION
  Report Type: Report from Study
  Country: US (occurrence: US)
  Receive Date: 20130409
  Receipt Date: 20130507
  Transmission Date: 20140414
  Serious: Yes (Other)
  Sender: FDA-Public Use
  Company Number: US-ROCHE-1209723

PATIENT
  Sex: 0

DRUGS (2)
  1. ALTEPLASE [Suspect]
     Indication: DEVICE OCCLUSION
     Dosage: 2 MG/2 ML
     Route: 065
  2. ALTEPLASE [Suspect]
     Indication: OFF LABEL USE

REACTIONS (1)
  - Pyrexia [Unknown]
